FAERS Safety Report 4511599-9 (Version None)
Quarter: 2004Q4

REPORT INFORMATION
  Report Type: 
  Country: None (occurrence: None)
  Receive Date: 20041129
  Receipt Date: 20041012
  Transmission Date: 20050328
  Serious: No
  Sender: FDA-Public Use
  Company Number: US-BRISTOL-MYERS SQUIBB COMPANY-12730040

PATIENT
  Age: 50 Year
  Sex: Female

DRUGS (4)
  1. ABILIFY [Suspect]
     Indication: PSYCHOTIC DISORDER
     Dosage: DECREASED TO 10 MG/DAY, THEN TAPERED TO 5 MG/DAY THEN 2.5 MG/DAY
     Dates: start: 20030124, end: 20040608
  2. BEXTRA [Concomitant]
  3. ZANAFLEX [Concomitant]
  4. EFFEXOR XR [Concomitant]

REACTIONS (2)
  - DYSKINESIA [None]
  - EXTRAPYRAMIDAL DISORDER [None]
